FAERS Safety Report 21631492 (Version 2)
Quarter: 2022Q4

REPORT INFORMATION
  Report Type: Spontaneous
  Country: PR (occurrence: PR)
  Receive Date: 20221123
  Receipt Date: 20221125
  Transmission Date: 20230113
  Serious: No
  Sender: FDA-Public Use
  Company Number: PR-JNJFOC-20221147966

PATIENT
  Age: 84 Year
  Sex: Male

DRUGS (1)
  1. ERLEADA [Suspect]
     Active Substance: APALUTAMIDE
     Indication: Prostate cancer
     Route: 048

REACTIONS (1)
  - Dysuria [Unknown]

NARRATIVE: CASE EVENT DATE: 20221101
